FAERS Safety Report 5676625-2 (Version None)
Quarter: 2008Q1

REPORT INFORMATION
  Report Type: 
  Country: None (occurrence: None)
  Receive Date: 20080324
  Receipt Date: 20080222
  Transmission Date: 20080703
  Serious: No
  Sender: FDA-Public Use
  Company Number: US-BAYER-200814888NA

PATIENT
  Age: 73 Year
  Sex: Male

DRUGS (2)
  1. AVELOX [Suspect]
     Indication: PNEUMONIA
     Route: 048
     Dates: start: 20080220
  2. CLINDAMYCIN HCL [Concomitant]
     Indication: TOOTH INFECTION

REACTIONS (3)
  - COUGH [None]
  - INCREASED BRONCHIAL SECRETION [None]
  - PNEUMONIA [None]
